FAERS Safety Report 10786582 (Version 1)
Quarter: 2015Q1

REPORT INFORMATION
  Report Type: Spontaneous
  Country: JP (occurrence: JP)
  Receive Date: 20150211
  Receipt Date: 20150211
  Transmission Date: 20150721
  Serious: Yes (Hospitalization)
  Sender: FDA-Public Use
  Company Number: JP-EISAI MEDICAL RESEARCH-EC-2015-003772

PATIENT
  Age: 39 Year
  Sex: Female

DRUGS (7)
  1. PHENYTOIN. [Suspect]
     Active Substance: PHENYTOIN
     Dosage: UNKNOWN
     Route: 048
  2. PHENYTOIN. [Suspect]
     Active Substance: PHENYTOIN
     Route: 048
  3. SODIUM VALPROATE [Concomitant]
     Active Substance: VALPROATE SODIUM
     Dosage: UNKNOWN
     Route: 048
  4. EXCEGRAN [Suspect]
     Active Substance: ZONISAMIDE
     Indication: EPILEPSY
     Dosage: UNKNOWN
     Route: 048
  5. EXCEGRAN [Suspect]
     Active Substance: ZONISAMIDE
     Dosage: UNKNOWN
     Route: 048
  6. PHENYTOIN. [Suspect]
     Active Substance: PHENYTOIN
     Indication: EPILEPSY
     Dosage: UNKNOWN
     Route: 048
  7. PHENYTOIN. [Suspect]
     Active Substance: PHENYTOIN
     Route: 048

REACTIONS (1)
  - Depressed level of consciousness [Recovering/Resolving]
